FAERS Safety Report 13017920 (Version 3)
Quarter: 2016Q4

REPORT INFORMATION
  Report Type: Spontaneous
  Country: TR (occurrence: TR)
  Receive Date: 20161212
  Receipt Date: 20161227
  Transmission Date: 20170207
  Serious: Yes (Other)
  Sender: FDA-Public Use
  Company Number: PHHY2016TR162642

PATIENT
  Age: 27 Year
  Sex: Female

DRUGS (1)
  1. FINGYA [Suspect]
     Active Substance: FINGOLIMOD
     Indication: PRODUCT USED FOR UNKNOWN INDICATION
     Dosage: UNK
     Route: 065
     Dates: start: 201505

REACTIONS (6)
  - Electrocardiogram QT prolonged [Not Recovered/Not Resolved]
  - Palpitations [Unknown]
  - Hypotension [Unknown]
  - Bradycardia [Unknown]
  - Cardiac aneurysm [Not Recovered/Not Resolved]
  - Syncope [Unknown]

NARRATIVE: CASE EVENT DATE: 201611
